FAERS Safety Report 20348554 (Version 1)
Quarter: 2022Q1

REPORT INFORMATION
  Report Type: Spontaneous
  Country: JP (occurrence: JP)
  Receive Date: 20220119
  Receipt Date: 20220119
  Transmission Date: 20220423
  Serious: Yes (Hospitalization, Other)
  Sender: FDA-Public Use
  Company Number: JP-GRUNENTHAL-2022-100390

PATIENT
  Age: 64 Year
  Sex: Male

DRUGS (2)
  1. TRAMADOL HYDROCHLORIDE [Interacting]
     Active Substance: TRAMADOL HYDROCHLORIDE
     Indication: Tumour pain
     Dosage: 1 DOSAGE FORM, 1/DAY
     Route: 065
  2. WARFARIN POTASSIUM [Interacting]
     Active Substance: WARFARIN POTASSIUM
     Indication: Atrial fibrillation
     Dosage: 1 DOSAGE FORM, 1/DAY
     Route: 048

REACTIONS (5)
  - Hypoaesthesia [Unknown]
  - Subarachnoid haemorrhage [Unknown]
  - Tremor [Unknown]
  - International normalised ratio increased [Unknown]
  - Drug interaction [Unknown]
